FAERS Safety Report 6633230-9 (Version None)
Quarter: 2010Q1

REPORT INFORMATION
  Report Type: 
  Country: None (occurrence: None)
  Receive Date: 20100312
  Receipt Date: 20100310
  Transmission Date: 20100710
  Serious: Yes (Death, Hospitalization)
  Sender: FDA-Public Use
  Company Number: PHHY2008JP31793

PATIENT
  Sex: Male
  Weight: 56 kg

DRUGS (8)
  1. NEORAL [Suspect]
     Indication: IDIOPATHIC THROMBOCYTOPENIC PURPURA
     Dosage: 50 MG/DAY
     Route: 048
     Dates: start: 20080714, end: 20080827
  2. PREDONINE [Suspect]
     Indication: AUTOIMMUNE HEPATITIS
     Dosage: 50 MG
     Route: 048
     Dates: start: 20080621, end: 20080627
  3. PREDONINE [Suspect]
     Indication: SYSTEMIC LUPUS ERYTHEMATOSUS
     Dosage: 40 MG
     Route: 048
     Dates: start: 20080628, end: 20080704
  4. PREDONINE [Suspect]
     Dosage: 30 MG
     Route: 048
     Dates: start: 20080705, end: 20080707
  5. PREDONINE [Suspect]
     Dosage: 35 MG
     Route: 048
     Dates: start: 20080708, end: 20080714
  6. PREDONINE [Suspect]
     Dosage: 30 MG
     Route: 048
     Dates: start: 20080715, end: 20080718
  7. PREDONINE [Suspect]
     Dosage: 25 MG
     Route: 048
     Dates: start: 20080719, end: 20080808
  8. PREDONINE [Suspect]
     Dosage: 22.5 MG
     Route: 048
     Dates: start: 20080809, end: 20080819

REACTIONS (11)
  - ASPERGILLOSIS [None]
  - BILEVEL POSITIVE AIRWAY PRESSURE [None]
  - BLOOD PRESSURE DECREASED [None]
  - C-REACTIVE PROTEIN INCREASED [None]
  - ENDOTRACHEAL INTUBATION [None]
  - FUNGAL TEST POSITIVE [None]
  - HEART RATE DECREASED [None]
  - PNEUMOCYSTIS JIROVECI PNEUMONIA [None]
  - PULMONARY MYCOSIS [None]
  - RESTLESSNESS [None]
  - WHITE BLOOD CELL COUNT INCREASED [None]
